FAERS Safety Report 5588832-8 (Version None)
Quarter: 2008Q1

REPORT INFORMATION
  Report Type: 
  Country: None (occurrence: None)
  Receive Date: 20080111
  Receipt Date: 20080102
  Transmission Date: 20080703
  Serious: Yes (Hospitalization, Other)
  Sender: FDA-Public Use
  Company Number: GB-PFIZER INC-2008000351

PATIENT
  Age: 77 Year
  Sex: Female

DRUGS (7)
  1. SERTRALINE [Suspect]
     Indication: DEPRESSION
     Route: 048
     Dates: start: 20070526, end: 20071019
  2. HALOPERIDOL [Suspect]
     Route: 048
     Dates: start: 20070403, end: 20071019
  3. ARICEPT [Suspect]
     Indication: DEMENTIA ALZHEIMER'S TYPE
     Route: 048
  4. ASPIRIN [Concomitant]
     Route: 048
  5. FOLIC ACID [Concomitant]
     Route: 048
  6. MIXTARD HUMAN 70/30 [Concomitant]
     Dosage: DAILY DOSE:76I.U.
     Route: 058
  7. SIMVASTATIN [Concomitant]
     Dosage: DAILY DOSE:20MG
     Route: 048

REACTIONS (1)
  - CONVULSION [None]
